FAERS Safety Report 23893651 (Version 1)
Quarter: 2024Q2

REPORT INFORMATION
  Report Type: Spontaneous
  Country: US (occurrence: US)
  Receive Date: 20240524
  Receipt Date: 20240524
  Transmission Date: 20240715
  Serious: Yes (Other)
  Sender: FDA-Public Use
  Company Number: US-JNJFOC-20240536742

PATIENT
  Age: 77 Year
  Sex: Male

DRUGS (2)
  1. BALVERSA [Suspect]
     Active Substance: ERDAFITINIB
     Indication: Fibroblast growth factor 23
     Route: 048
  2. BALVERSA [Suspect]
     Active Substance: ERDAFITINIB
     Route: 048

REACTIONS (2)
  - Macular oedema [Recovered/Resolved]
  - Off label use [Unknown]
